FAERS Safety Report 6756859-6 (Version None)
Quarter: 2010Q2

REPORT INFORMATION
  Report Type: 
  Country: None (occurrence: None)
  Receive Date: 20100524
  Receipt Date: 20100212
  Transmission Date: 20101027
  Serious: No
  Sender: FDA-Public Use
  Company Number: 006925

PATIENT
  Sex: Female
  Weight: 63.6 kg

DRUGS (9)
  1. CIMZIA [Suspect]
     Indication: RHEUMATOID ARTHRITIS
     Dosage: (400 MG SUBCUTANEOUS)
     Route: 058
     Dates: start: 20090801
  2. MUSCLE RELAXANTS [Concomitant]
  3. HYPNOTICS AND SEDATIVES [Concomitant]
  4. PRILOSEC [Concomitant]
  5. ATARAX [Concomitant]
  6. CLARITIN /00917501/ [Concomitant]
  7. PILOCARPINE HYDROCHLORIDE [Concomitant]
  8. ZOLOFT /01011402/ [Concomitant]
  9. FOLIC ACID [Concomitant]

REACTIONS (4)
  - CONTUSION [None]
  - RASH GENERALISED [None]
  - RASH PRURITIC [None]
  - SKIN INJURY [None]
